FAERS Safety Report 20699332 (Version 1)
Quarter: 2022Q2

REPORT INFORMATION
  Report Type: Spontaneous
  Country: US (occurrence: None)
  Receive Date: 20220411
  Receipt Date: 20220411
  Transmission Date: 20220721
  Serious: Yes (Hospitalization)
  Sender: FDA-Public Use
  Company Number: None

PATIENT
  Age: 38 Year
  Sex: Male

DRUGS (2)
  1. DROPERIDOL [Suspect]
     Active Substance: DROPERIDOL
     Indication: Schizophrenia
     Dosage: 2.5 MG ONCE IV?
     Route: 042
     Dates: start: 20211107, end: 20211107
  2. LORAZEPAM [Suspect]
     Active Substance: LORAZEPAM
     Dosage: 0.5 MG ONCE IV?
     Route: 042
     Dates: start: 20211107, end: 20211107

REACTIONS (7)
  - Agitation [None]
  - Orthostatic hypotension [None]
  - Blood pressure fluctuation [None]
  - Syncope [None]
  - Dysuria [None]
  - Loss of consciousness [None]
  - Bradycardia [None]

NARRATIVE: CASE EVENT DATE: 20211107
